FAERS Safety Report 7673724-0 (Version None)
Quarter: 2011Q3

REPORT INFORMATION
  Report Type: 
  Country: None (occurrence: None)
  Receive Date: 20110808
  Receipt Date: 20110726
  Transmission Date: 20111222
  Serious: Yes (Other)
  Sender: FDA-Public Use
  Company Number: US-1187234

PATIENT
  Age: 64 Year
  Sex: Male

DRUGS (1)
  1. BSS [Suspect]
     Dosage: (INTRAOCULAR)
     Route: 031

REACTIONS (1)
  - TOXIC ANTERIOR SEGMENT SYNDROME [None]
